FAERS Safety Report 14799333 (Version 1)
Quarter: 2018Q2

REPORT INFORMATION
  Report Type: Spontaneous
  Country: US (occurrence: US)
  Receive Date: 20180424
  Receipt Date: 20180424
  Transmission Date: 20180711
  Serious: Yes (Hospitalization, Other)
  Sender: FDA-Public Use
  Company Number: US-009507513-1804USA008327

PATIENT
  Age: 61 Year
  Sex: Female

DRUGS (1)
  1. KEYTRUDA [Suspect]
     Active Substance: PEMBROLIZUMAB
     Indication: HEAD AND NECK CANCER
     Dosage: UNK
     Route: 042
     Dates: start: 201606, end: 201611

REACTIONS (16)
  - Renal disorder [Recovered/Resolved]
  - Neuropathy peripheral [Recovered/Resolved]
  - Pneumonitis [Recovered/Resolved]
  - Delirium [Recovered/Resolved]
  - Eating disorder [Recovered/Resolved]
  - Hormone level abnormal [Recovered/Resolved]
  - Weight decreased [Recovered/Resolved]
  - Pollakiuria [Recovered/Resolved]
  - Nausea [Recovered/Resolved]
  - Fatigue [Recovered/Resolved]
  - Oxygen saturation decreased [Recovered/Resolved]
  - Pulmonary fibrosis [Recovered/Resolved]
  - Dysarthria [Recovered/Resolved]
  - Mobility decreased [Recovered/Resolved]
  - Alopecia [Recovered/Resolved]
  - Dry mouth [Recovered/Resolved]

NARRATIVE: CASE EVENT DATE: 2016
